FAERS Safety Report 5347244-2 (Version None)
Quarter: 2007Q2

REPORT INFORMATION
  Report Type: 
  Country: None (occurrence: None)
  Receive Date: 20070606
  Receipt Date: 20070529
  Transmission Date: 20071010
  Serious: Yes (Death, Other)
  Sender: FDA-Public Use
  Company Number: PHBS2007AR09024

PATIENT
  Age: 48 Year
  Sex: Female

DRUGS (3)
  1. CYCLOSPORINE [Suspect]
     Indication: HEART TRANSPLANT
     Route: 065
  2. AZATHIOPRINE [Suspect]
     Indication: HEART TRANSPLANT
     Dosage: 50 MG/DAY
     Route: 065
  3. PREDNISONE TAB [Suspect]
     Indication: HEART TRANSPLANT
     Dosage: 30 MG/DAY
     Route: 065

REACTIONS (4)
  - AMERICAN TRYPANOSOMIASIS [None]
  - DISEASE RECURRENCE [None]
  - HEART TRANSPLANT REJECTION [None]
  - TRANSPLANT REJECTION [None]
